FAERS Safety Report 4679514-5 (Version None)
Quarter: 2005Q2

REPORT INFORMATION
  Report Type: 
  Country: None (occurrence: None)
  Receive Date: 20050602
  Receipt Date: 20050524
  Transmission Date: 20051028
  Serious: Yes (Death, Other)
  Sender: FDA-Public Use
  Company Number: PHBS2005BE07544

PATIENT
  Age: 66 Year
  Sex: Female

DRUGS (10)
  1. ZOMETA [Suspect]
     Dosage: UNK, QMO
     Route: 042
     Dates: start: 20030101, end: 20040701
  2. CYCLOPHOSPHAMIDE + 5-FU + METHOTREXATE [Concomitant]
     Dosage: DAY 1 AND DAY 8, 6 CYCLES
     Route: 065
     Dates: start: 19980601
  3. 5-FU + EPIRUBICIN + CYCLOPHOSPHAMIDE [Concomitant]
     Dosage: 4 CYCLES
     Route: 065
     Dates: start: 20020501
  4. TAXOTERE [Concomitant]
     Dosage: 6 CYCLES
     Route: 065
     Dates: start: 20020801
  5. EPIRUBICIN [Concomitant]
     Dosage: 6 CYCLES
     Route: 065
     Dates: start: 20020801
  6. XELODA [Concomitant]
     Route: 065
     Dates: start: 20030101
  7. ARIMIDEX [Concomitant]
     Route: 065
     Dates: start: 20040501
  8. FASLODEX [Concomitant]
     Route: 065
     Dates: start: 20040801
  9. AREDIA [Suspect]
     Route: 042
     Dates: start: 19990101, end: 20030101
  10. AREDIA [Suspect]
     Dosage: 90 MG, QD
     Route: 042
     Dates: start: 20040801, end: 20040801

REACTIONS (12)
  - ASCITES [None]
  - ASEPTIC NECROSIS BONE [None]
  - DENTAL CARE [None]
  - FISTULA [None]
  - IMPAIRED HEALING [None]
  - INFECTION [None]
  - MALIGNANT NEOPLASM PROGRESSION [None]
  - MUCOSAL EROSION [None]
  - NEURALGIA [None]
  - PRIMARY SEQUESTRUM [None]
  - SINUS DISORDER [None]
  - SURGERY [None]
